FAERS Safety Report 4654116-5 (Version None)
Quarter: 2005Q2

REPORT INFORMATION
  Report Type: 
  Country: None (occurrence: None)
  Receive Date: 20050504
  Receipt Date: 20050420
  Transmission Date: 20051028
  Serious: Yes (Hospitalization)
  Sender: FDA-Public Use
  Company Number: MED000110

PATIENT
  Age: 12 Year
  Sex: Female
  Weight: 45.7 kg

DRUGS (1)
  1. 5% DEXTROSE AND 0.45% SODIUM CHLORIDE INJECTION IN PLASTIC CONTAINER ( [Suspect]
     Indication: RESPIRATORY TRACT INFECTION
     Dosage: INTRAVENOUS
     Route: 042
     Dates: start: 20050419, end: 20050420

REACTIONS (2)
  - HYPERTHERMIA [None]
  - TREMOR [None]
